FAERS Safety Report 20327231 (Version 1)
Quarter: 2022Q1

REPORT INFORMATION
  Report Type: Spontaneous
  Country: IT (occurrence: IT)
  Receive Date: 20220112
  Receipt Date: 20220112
  Transmission Date: 20220423
  Serious: Yes (Other)
  Sender: FDA-Public Use
  Company Number: IT-MYLANLABS-2022M1002331

PATIENT
  Age: 69 Year
  Sex: Female

DRUGS (2)
  1. SORAFENIB [Suspect]
     Active Substance: SORAFENIB
     Indication: Clear cell renal cell carcinoma
     Dosage: THE FIFTH-LINE THERAPY
     Route: 065
  2. CABOZANTINIB [Concomitant]
     Active Substance: CABOZANTINIB
     Indication: Clear cell renal cell carcinoma
     Dosage: 40 MILLIGRAM, QD, THE FOURTH-LINE THERAPY
     Route: 065
     Dates: start: 201612

REACTIONS (1)
  - Hepatotoxicity [Unknown]
